FAERS Safety Report 15130833 (Version 2)
Quarter: 2018Q3

REPORT INFORMATION
  Report Type: Spontaneous
  Country: US (occurrence: US)
  Receive Date: 20180711
  Receipt Date: 20180920
  Transmission Date: 20181010
  Serious: Yes (Hospitalization)
  Sender: FDA-Public Use
  Company Number: US-ACTELION-A-US2018-174989

PATIENT
  Age: 67 Year
  Sex: Female

DRUGS (2)
  1. OPSUMIT [Suspect]
     Active Substance: MACITENTAN
     Indication: PRODUCT USED FOR UNKNOWN INDICATION
     Dosage: UNK
     Route: 048
  2. OXYGEN. [Concomitant]
     Active Substance: OXYGEN

REACTIONS (5)
  - Sedation complication [Recovering/Resolving]
  - Hypotension [Recovering/Resolving]
  - Confusional state [Unknown]
  - Pleural effusion [Recovering/Resolving]
  - Respiratory failure [Recovering/Resolving]
